FAERS Safety Report 8606843-2 (Version None)
Quarter: 2012Q3

REPORT INFORMATION
  Report Type: 
  Country: None (occurrence: None)
  Receive Date: 20120820
  Receipt Date: 20120810
  Transmission Date: 20120928
  Serious: Yes (Other)
  Sender: FDA-Public Use
  Company Number: CHPA2012US018007

PATIENT
  Age: 76 Year
  Sex: Female

DRUGS (1)
  1. EXCEDRIN EXTRA STRENGTH CAPLETS [Suspect]
     Indication: MIGRAINE
     Dosage: 1-2 TABLETS, PRN
     Route: 048
     Dates: start: 19600101, end: 20120601

REACTIONS (6)
  - UNDERDOSE [None]
  - VISUAL IMPAIRMENT [None]
  - CATARACT [None]
  - PAIN IN EXTREMITY [None]
  - HYPERTENSION [None]
  - EXPIRED DRUG ADMINISTERED [None]
